FAERS Safety Report 6535036-8 (Version None)
Quarter: 2010Q1

REPORT INFORMATION
  Report Type: 
  Country: None (occurrence: None)
  Receive Date: 20100112
  Receipt Date: 20100108
  Transmission Date: 20100710
  Serious: Yes (Hospitalization, Other)
  Sender: FDA-Public Use
  Company Number: US-AMGEN-US384410

PATIENT
  Sex: Female

DRUGS (10)
  1. NPLATE [Suspect]
     Indication: IDIOPATHIC THROMBOCYTOPENIC PURPURA
  2. FLAGYL [Concomitant]
  3. LASIX [Concomitant]
  4. CARDIZEM [Concomitant]
  5. DIGOXIN [Concomitant]
  6. ASPIRIN [Concomitant]
  7. DIOVAN [Concomitant]
  8. COUMADIN [Concomitant]
  9. ZOCOR [Concomitant]
  10. LIOTRIX [Concomitant]

REACTIONS (1)
  - CEREBROVASCULAR ACCIDENT [None]
